FAERS Safety Report 11864801 (Version 2)
Quarter: 2016Q1

REPORT INFORMATION
  Report Type: Spontaneous
  Country: US (occurrence: US)
  Receive Date: 20151223
  Receipt Date: 20160120
  Transmission Date: 20160526
  Serious: Yes (Hospitalization)
  Sender: FDA-Public Use
  Company Number: US-BAXTER-2015BAX068837

PATIENT
  Age: 66 Year
  Sex: Male
  Weight: 115 kg

DRUGS (1)
  1. DIANEAL LOW CALCIUM PERITONEAL DIALYSIS SOLUTION WITH DEXTROSE [Suspect]
     Active Substance: CALCIUM CHLORIDE\DEXTROSE\MAGNESIUM CHLORIDE\SODIUM CHLORIDE\SODIUM LACTATE
     Indication: PERITONEAL DIALYSIS
     Route: 033

REACTIONS (5)
  - Product deposit [Unknown]
  - Visual acuity reduced [Unknown]
  - Eye disorder [Unknown]
  - Poor quality drug administered [Unknown]
  - Post procedural complication [Unknown]

NARRATIVE: CASE EVENT DATE: 20151214
